FAERS Safety Report 12578514 (Version 3)
Quarter: 2016Q3

REPORT INFORMATION
  Report Type: Spontaneous
  Country: US (occurrence: US)
  Receive Date: 20160721
  Receipt Date: 20160808
  Transmission Date: 20161109
  Serious: No
  Sender: FDA-Public Use
  Company Number: US-BEH-2016062691

PATIENT
  Sex: Female
  Weight: 102 kg

DRUGS (25)
  1. LIDOCAINE. [Concomitant]
     Active Substance: LIDOCAINE
  2. VANCOMYCIN-D5W [Concomitant]
  3. SYNTHROID [Concomitant]
     Active Substance: LEVOTHYROXINE SODIUM
  4. SINGULAIR [Concomitant]
     Active Substance: MONTELUKAST SODIUM
  5. SYMBICORT [Concomitant]
     Active Substance: BUDESONIDE\FORMOTEROL FUMARATE DIHYDRATE
  6. ACETAMINOPHEN. [Concomitant]
     Active Substance: ACETAMINOPHEN
  7. CALCIUM 500 + D [Concomitant]
     Active Substance: CALCIUM\VITAMIN D
  8. COMPLETE MULTIVITAMIN [Concomitant]
     Active Substance: VITAMINS
  9. FLONASE [Concomitant]
     Active Substance: FLUTICASONE PROPIONATE
  10. HIZENTRA [Suspect]
     Active Substance: HUMAN IMMUNOGLOBULIN G
     Route: 058
  11. AUGMENTIN [Concomitant]
     Active Substance: AMOXICILLIN\CLAVULANATE POTASSIUM
  12. ALLEGRA [Concomitant]
     Active Substance: FEXOFENADINE HYDROCHLORIDE
  13. METHYLDOPA. [Concomitant]
     Active Substance: METHYLDOPA
  14. DIPHENHYDRAMINE. [Concomitant]
     Active Substance: DIPHENHYDRAMINE
  15. DOXYCYCLINE. [Concomitant]
     Active Substance: DOXYCYCLINE
  16. BIAXIN [Concomitant]
     Active Substance: CLARITHROMYCIN
  17. CEFDINIR. [Concomitant]
     Active Substance: CEFDINIR
  18. SPIRONOLACTONE. [Concomitant]
     Active Substance: SPIRONOLACTONE
  19. EFFEXOR XR [Concomitant]
     Active Substance: VENLAFAXINE HYDROCHLORIDE
  20. HIZENTRA [Suspect]
     Active Substance: HUMAN IMMUNOGLOBULIN G
     Indication: IMMUNODEFICIENCY COMMON VARIABLE
     Route: 058
  21. HIZENTRA [Suspect]
     Active Substance: HUMAN IMMUNOGLOBULIN G
     Route: 058
  22. HIZENTRA [Suspect]
     Active Substance: HUMAN IMMUNOGLOBULIN G
     Route: 058
  23. EPIPEN [Concomitant]
     Active Substance: EPINEPHRINE
  24. ZOLOFT [Concomitant]
     Active Substance: SERTRALINE HYDROCHLORIDE
  25. PROTONIX [Concomitant]
     Active Substance: PANTOPRAZOLE SODIUM

REACTIONS (1)
  - Sinusitis [Unknown]
